FAERS Safety Report 6690040-4 (Version None)
Quarter: 2010Q2

REPORT INFORMATION
  Report Type: 
  Country: None (occurrence: None)
  Receive Date: 20100421
  Receipt Date: 20100412
  Transmission Date: 20101027
  Serious: Yes (Hospitalization)
  Sender: FDA-Public Use
  Company Number: PHHY2010FR22736

PATIENT
  Age: 84 Year
  Sex: Male

DRUGS (4)
  1. VOLTAREN [Suspect]
     Indication: OSTEOARTHRITIS
     Dosage: 75 MG, UNK
     Route: 048
  2. ESOMEPRAZOLE [Concomitant]
  3. TAREG [Concomitant]
     Indication: HYPERTENSION
  4. KARDEGIC [Concomitant]

REACTIONS (1)
  - CHOLANGITIS [None]
